FAERS Safety Report 24351829 (Version 1)
Quarter: 2024Q3

REPORT INFORMATION
  Report Type: Report from Study
  Country: CA (occurrence: CA)
  Receive Date: 20240923
  Receipt Date: 20240923
  Transmission Date: 20241017
  Serious: No
  Sender: ROCHE
  Company Number: CA-ROCHE-3571431

PATIENT
  Age: 65 Year
  Sex: Female
  Weight: 57.0 kg

DRUGS (16)
  1. HERCEPTIN [Suspect]
     Active Substance: TRASTUZUMAB
     Indication: Breast cancer metastatic
     Dosage: STARTED OUTSIDE OF RPAP
     Route: 041
  2. HERCEPTIN [Suspect]
     Active Substance: TRASTUZUMAB
     Dosage: FIRST DOSE THROUGH RPAP
     Route: 041
     Dates: start: 20211021, end: 20211021
  3. HERCEPTIN [Suspect]
     Active Substance: TRASTUZUMAB
     Route: 041
     Dates: start: 20211111, end: 20240412
  4. HERCEPTIN [Suspect]
     Active Substance: TRASTUZUMAB
     Route: 041
     Dates: start: 20240503
  5. AMLODIPINE [Concomitant]
     Active Substance: AMLODIPINE BESYLATE
     Route: 048
  6. BETAHISTINE [Concomitant]
     Active Substance: BETAHISTINE
  7. CALCIUM CARBONATE [Concomitant]
     Active Substance: CALCIUM CARBONATE
  8. CHONDROITIN;HYALURONIC ACID [Concomitant]
  9. COD LIVER OIL [Concomitant]
     Active Substance: COD LIVER OIL
  10. GLUCOSAMIN CHONDROITIN MSM [Concomitant]
  11. LETROZOLE [Concomitant]
     Active Substance: LETROZOLE
     Dates: start: 20221117
  12. METOPROLOL [Concomitant]
     Active Substance: METOPROLOL
     Route: 048
  13. TRAZODONE [Concomitant]
     Active Substance: TRAZODONE HYDROCHLORIDE
  14. VITAMIN B12 [Concomitant]
     Active Substance: CYANOCOBALAMIN
  15. VITAMIN B6 [Concomitant]
     Active Substance: PYRIDOXINE HYDROCHLORIDE
  16. VITAMIN D3 [Concomitant]
     Active Substance: CHOLECALCIFEROL

REACTIONS (1)
  - Oxygen saturation decreased [Unknown]

NARRATIVE: CASE EVENT DATE: 20240524
